FAERS Safety Report 6383801-2 (Version None)
Quarter: 2009Q3

REPORT INFORMATION
  Report Type: 
  Country: None (occurrence: None)
  Receive Date: 20090929
  Receipt Date: 20090929
  Transmission Date: 20100115
  Serious: Yes (Disabling)
  Sender: FDA-Public Use
  Company Number: None

PATIENT
  Age: 21 Year
  Sex: Female
  Weight: 58.9676 kg

DRUGS (1)
  1. YASMIN [Suspect]
     Indication: FIBROCYSTIC BREAST DISEASE
     Dosage: 1 DAILY PO
     Route: 048
     Dates: start: 20060601, end: 20080530

REACTIONS (1)
  - GALLBLADDER DISORDER [None]
